FAERS Safety Report 5881403-5 (Version None)
Quarter: 2008Q3

REPORT INFORMATION
  Report Type: 
  Country: None (occurrence: None)
  Receive Date: 20080912
  Receipt Date: 20080630
  Transmission Date: 20090109
  Serious: No
  Sender: FDA-Public Use
  Company Number: US-ABBOTT-08P-163-0460227-00

PATIENT
  Sex: Male
  Weight: 83.99 kg

DRUGS (7)
  1. HUMIRA [Suspect]
     Indication: PSORIATIC ARTHROPATHY
     Route: 058
     Dates: start: 20080201
  2. TYLOX [Concomitant]
     Indication: PAIN
     Route: 048
  3. TRAMADOL HCL [Concomitant]
     Indication: PAIN
     Route: 048
  4. FOLIC ACID [Concomitant]
     Indication: VITAMIN SUPPLEMENTATION
     Route: 048
  5. DICYCLOMINE HCL [Concomitant]
     Indication: DRUG USE FOR UNKNOWN INDICATION
  6. CLONAZEPAM [Concomitant]
     Indication: DRUG USE FOR UNKNOWN INDICATION
     Route: 048
  7. VALIUM [Concomitant]
     Indication: DRUG USE FOR UNKNOWN INDICATION
     Route: 048

REACTIONS (1)
  - ARTHRALGIA [None]
